FAERS Safety Report 4469284-8 (Version None)
Quarter: 2004Q4

REPORT INFORMATION
  Report Type: 
  Country: None (occurrence: None)
  Receive Date: 20041008
  Receipt Date: 20030904
  Transmission Date: 20050328
  Serious: No
  Sender: FDA-Public Use
  Company Number: US-BRISTOL-MYERS SQUIBB COMPANY-12377958

PATIENT
  Sex: Male

DRUGS (1)
  1. IRBESARTAN TABS [Suspect]
     Route: 048

REACTIONS (1)
  - DYSGEUSIA [None]
